FAERS Safety Report 22298682 (Version 1)
Quarter: 2023Q2

REPORT INFORMATION
  Report Type: Spontaneous
  Country: FR (occurrence: FR)
  Receive Date: 20230509
  Receipt Date: 20230509
  Transmission Date: 20230721
  Serious: Yes (Other)
  Sender: FDA-Public Use
  Company Number: FR-drreddys-LIT/FRA/23/0164794

PATIENT
  Age: 80 Year
  Sex: Male

DRUGS (5)
  1. AZACITIDINE [Suspect]
     Active Substance: AZACITIDINE
     Indication: Blastic plasmacytoid dendritic cell neoplasia
     Dosage: 75 MG/M2/DAY/7D/CYCLE
  2. AZACITIDINE [Suspect]
     Active Substance: AZACITIDINE
     Dosage: FROM C7, AZACITIDINE WAS REDUCED TO 5D
  3. VENETOCLAX [Suspect]
     Active Substance: VENETOCLAX
     Indication: Blastic plasmacytoid dendritic cell neoplasia
     Dosage: 50-300 MG/D/28D/C FROM C1
  4. VENETOCLAX [Suspect]
     Active Substance: VENETOCLAX
     Dosage: 200 MG/D FROM C2
  5. VENETOCLAX [Suspect]
     Active Substance: VENETOCLAX
     Dosage: 200 /21D/C

REACTIONS (3)
  - Haematotoxicity [Unknown]
  - Cytopenia [Unknown]
  - Product use in unapproved indication [Unknown]
